FAERS Safety Report 23300387 (Version 1)
Quarter: 2023Q4

REPORT INFORMATION
  Report Type: Spontaneous
  Country: CN (occurrence: None)
  Receive Date: 20231215
  Receipt Date: 20231215
  Transmission Date: 20240109
  Serious: Yes (Hospitalization)
  Sender: FDA-Public Use
  Company Number: CN-ROCHE-3473859

PATIENT
  Age: 31 Year
  Sex: Female

DRUGS (5)
  1. HERCEPTIN [Suspect]
     Active Substance: TRASTUZUMAB
     Indication: Breast cancer
     Route: 041
     Dates: start: 20230530, end: 20230530
  2. PACLITAXEL [Suspect]
     Active Substance: PACLITAXEL
     Indication: Breast cancer
     Route: 041
     Dates: start: 20230531, end: 20230531
  3. PACLITAXEL [Suspect]
     Active Substance: PACLITAXEL
     Route: 041
     Dates: start: 20230531, end: 20230531
  4. PACLITAXEL [Suspect]
     Active Substance: PACLITAXEL
     Route: 041
     Dates: start: 20230531, end: 20230531
  5. CARBOPLATIN [Suspect]
     Active Substance: CARBOPLATIN
     Indication: Breast cancer
     Route: 041
     Dates: start: 20230531, end: 20230531

REACTIONS (2)
  - Myelosuppression [Unknown]
  - Platelet count decreased [Unknown]

NARRATIVE: CASE EVENT DATE: 20230603
